FAERS Safety Report 6943651-2 (Version None)
Quarter: 2010Q3

REPORT INFORMATION
  Report Type: 
  Country: None (occurrence: None)
  Receive Date: 20100826
  Receipt Date: 20100823
  Transmission Date: 20110219
  Serious: Yes (Life-Threatening, Hospitalization, Other)
  Sender: FDA-Public Use
  Company Number: PHHY2010JP51546

PATIENT
  Age: 79 Year
  Sex: Male

DRUGS (4)
  1. ZOMETA [Suspect]
     Indication: BONE LESION
     Route: 041
  2. MELPHALAN [Concomitant]
  3. PREDONINE [Concomitant]
  4. ADRIACIN [Concomitant]

REACTIONS (2)
  - INFECTION [None]
  - OSTEONECROSIS OF JAW [None]
